FAERS Safety Report 17043988 (Version 1)
Quarter: 2019Q4

REPORT INFORMATION
  Report Type: Report from Study
  Country: GB (occurrence: GB)
  Receive Date: 20191118
  Receipt Date: 20191118
  Transmission Date: 20200122
  Serious: Yes (Hospitalization)
  Sender: FDA-Public Use
  Company Number: PHHO2017GB015442

PATIENT
  Age: 53 Year
  Sex: Female
  Weight: 63.1 kg

DRUGS (1)
  1. GILENYA [Suspect]
     Active Substance: FINGOLIMOD HYDROCHLORIDE
     Indication: RELAPSING-REMITTING MULTIPLE SCLEROSIS
     Dosage: 0.5 MG, QD
     Route: 048
     Dates: start: 20140610

REACTIONS (2)
  - Fall [Recovering/Resolving]
  - Femoral neck fracture [Unknown]

NARRATIVE: CASE EVENT DATE: 20151117
